FAERS Safety Report 11747458 (Version 1)
Quarter: 2015Q4

REPORT INFORMATION
  Report Type: Spontaneous
  Country: SI (occurrence: SI)
  Receive Date: 20151117
  Receipt Date: 20151117
  Transmission Date: 20160304
  Serious: Yes (Other)
  Sender: FDA-Public Use
  Company Number: SI-AMGEN-SVNSP2015120119

PATIENT
  Sex: Female

DRUGS (8)
  1. CYCLOCAPRON [Concomitant]
     Active Substance: TRANEXAMIC ACID
     Indication: PROPHYLAXIS
  2. INSULIN [Concomitant]
     Active Substance: INSULIN NOS
     Indication: DIABETES MELLITUS
  3. ELTROMBOPAG [Concomitant]
     Active Substance: ELTROMBOPAG
  4. NOLVADEX                           /00388701/ [Concomitant]
     Active Substance: TAMOXIFEN CITRATE
  5. MEDROL [Concomitant]
     Active Substance: METHYLPREDNISOLONE
     Dosage: 1 MUG/KG, UNK
  6. METHYLPREDNISOLONE. [Concomitant]
     Active Substance: METHYLPREDNISOLONE
  7. NPLATE [Suspect]
     Active Substance: ROMIPLOSTIM
     Indication: PRODUCT USED FOR UNKNOWN INDICATION
     Dosage: 3 MUG/KG, ( 2 TD)
     Route: 065
  8. INTRAVENOUS IMMUNOGLOBULIN (IVIG) [Concomitant]
     Dosage: 0.5 UNK, UNK

REACTIONS (1)
  - Breast cancer [Unknown]

NARRATIVE: CASE EVENT DATE: 201510
